FAERS Safety Report 9577772 (Version 2)
Quarter: 2013Q4

REPORT INFORMATION
  Report Type: Spontaneous
  Country: US (occurrence: US)
  Receive Date: 20131001
  Receipt Date: 20131001
  Transmission Date: 20140711
  Serious: No
  Sender: FDA-Public Use
  Company Number: US-AMGEN-USASP2013008617

PATIENT
  Age: 50 Year
  Sex: Female
  Weight: 85.71 kg

DRUGS (7)
  1. ENBREL [Suspect]
     Indication: RHEUMATOID ARTHRITIS
     Dosage: 50 MG, QWK
     Route: 058
     Dates: start: 20120814, end: 201301
  2. CELEBREX [Concomitant]
     Dosage: 200 UNK, BID
     Route: 048
  3. CYMBALTA [Concomitant]
     Dosage: UNK
     Route: 048
  4. PROCARDIA                          /00340701/ [Concomitant]
     Dosage: 30 UNK, QD
     Route: 048
  5. CRESTOR [Concomitant]
     Dosage: 5 UNK, QD
     Route: 048
  6. TOPAMAX [Concomitant]
     Dosage: 150 UNK, QD
     Route: 048
  7. RELPAX [Concomitant]
     Dosage: 40 AS NEEDED
     Route: 048

REACTIONS (5)
  - Rheumatoid arthritis [Not Recovered/Not Resolved]
  - Headache [Recovered/Resolved]
  - Drug ineffective [Not Recovered/Not Resolved]
  - Injection site reaction [Recovered/Resolved]
  - Injection site urticaria [Recovered/Resolved]
